FAERS Safety Report 8440359-1 (Version None)
Quarter: 2012Q2

REPORT INFORMATION
  Report Type: 
  Country: None (occurrence: None)
  Receive Date: 20120615
  Receipt Date: 20120606
  Transmission Date: 20120825
  Serious: Yes (Hospitalization, Other)
  Sender: FDA-Public Use
  Company Number: US-ASTRAZENECA-2012SE37919

PATIENT
  Age: 71 Year
  Sex: Female
  Weight: 81.6 kg

DRUGS (11)
  1. NEXIUM [Suspect]
     Indication: GASTROOESOPHAGEAL REFLUX DISEASE
     Route: 048
  2. METOPROLOL SUCCINATE [Suspect]
     Indication: BLOOD PRESSURE
     Route: 048
  3. FISH OIL [Concomitant]
     Indication: ARTHRITIS
  4. LEUCOVORIN CALCIUM [Concomitant]
  5. MAGNESIUM [Concomitant]
  6. ASPIRIN [Concomitant]
  7. ASTRAGALUS [Concomitant]
     Indication: IMMUNE SYSTEM DISORDER
     Dosage: 212.5 COMPLEX
  8. VITAMIN D [Concomitant]
  9. NEXIUM [Suspect]
     Indication: DYSPEPSIA
     Route: 048
  10. METHOTREXATE [Suspect]
     Indication: ARTHRITIS
     Route: 065
  11. DUETACT [Concomitant]
     Indication: DIABETES MELLITUS
     Dosage: 30-2 MG

REACTIONS (3)
  - CHEST DISCOMFORT [None]
  - WHITE BLOOD CELL COUNT DECREASED [None]
  - CORONARY ARTERY OCCLUSION [None]
